FAERS Safety Report 7350999-9 (Version None)
Quarter: 2011Q1

REPORT INFORMATION
  Report Type: 
  Country: None (occurrence: None)
  Receive Date: 20110314
  Receipt Date: 20110308
  Transmission Date: 20110831
  Serious: Yes (Death, Other)
  Sender: FDA-Public Use
  Company Number: PHHY2011GB18745

PATIENT

DRUGS (4)
  1. CO-CODAMOL [Suspect]
     Route: 064
  2. MORPHINE SULDATE [Suspect]
     Dosage: 5 MG, BID
     Route: 064
  3. PARACETAMOL [Suspect]
     Dosage: 1 G, UNK
     Route: 064
  4. BUPRENORPHINE HCL [Suspect]
     Indication: PAIN
     Dosage: 10 UG, PER HOURS
     Route: 064
     Dates: end: 20101229

REACTIONS (2)
  - DRUG EXPOSURE DURING PREGNANCY [None]
  - INTRA-UTERINE DEATH [None]
